FAERS Safety Report 8475138-2 (Version None)
Quarter: 2012Q2

REPORT INFORMATION
  Report Type: 
  Country: None (occurrence: None)
  Receive Date: 20120628
  Receipt Date: 20120625
  Transmission Date: 20120825
  Serious: Yes (Hospitalization)
  Sender: FDA-Public Use
  Company Number: US-PFIZER INC-2012152698

PATIENT
  Sex: Female
  Weight: 109 kg

DRUGS (7)
  1. ACETAMINOPHEN [Concomitant]
     Indication: HEADACHE
     Dosage: UNK, AS NEEDED
  2. IBUPROFEN (ADVIL) [Concomitant]
     Indication: MYALGIA
  3. DILANTIN [Suspect]
     Indication: CONVULSION
     Dosage: 100 MG, 3X/DAY
     Route: 048
     Dates: start: 19640101, end: 20120331
  4. NAPROXEN (ALEVE) [Concomitant]
     Indication: HEADACHE
     Dosage: UNK, AS NEEDED
  5. IBUPROFEN (ADVIL) [Concomitant]
     Indication: HEADACHE
     Dosage: UNK, AS NEEDED
     Route: 048
  6. ACETAMINOPHEN [Concomitant]
     Indication: MYALGIA
  7. NAPROXEN (ALEVE) [Concomitant]
     Indication: MYALGIA

REACTIONS (2)
  - CONVULSION [None]
  - STRESS [None]
